FAERS Safety Report 6495673-6 (Version None)
Quarter: 2009Q4

REPORT INFORMATION
  Report Type: 
  Country: None (occurrence: None)
  Receive Date: 20091214
  Receipt Date: 20090730
  Transmission Date: 20100525
  Serious: No
  Sender: FDA-Public Use
  Company Number: US-BRISTOL-MYERS SQUIBB COMPANY-14722631

PATIENT
  Age: 60 Year
  Sex: Female

DRUGS (1)
  1. ABILIFY [Suspect]
     Indication: BIPOLAR DISORDER
     Dosage: STARTED WITH 2MG/D, GRADUALLY INCREASED TO 5 MG, THEN TO 10 MG, STOPPED AND RESTARTED WITH 2MG/D

REACTIONS (3)
  - BRUXISM [None]
  - JAW DISORDER [None]
  - PSYCHIATRIC SYMPTOM [None]
